FAERS Safety Report 18369784 (Version 9)
Quarter: 2021Q4

REPORT INFORMATION
  Report Type: Report from Study
  Country: JP (occurrence: JP)
  Receive Date: 20201012
  Receipt Date: 20211203
  Transmission Date: 20220303
  Serious: Yes (Life-Threatening, Hospitalization, Other)
  Sender: FDA-Public Use
  Company Number: JP-PFIZER INC-2020354030

PATIENT
  Age: 79 Year
  Sex: Male
  Weight: 46 kg

DRUGS (13)
  1. VYNDAQEL [Suspect]
     Active Substance: TAFAMIDIS MEGLUMINE
     Indication: Hereditary neuropathic amyloidosis
     Dosage: 20 MG, 1X/DAY
     Route: 048
     Dates: start: 20180329, end: 20191212
  2. VONOPRAZAN FUMARATE [Concomitant]
     Active Substance: VONOPRAZAN FUMARATE
     Indication: Prophylaxis against gastrointestinal ulcer
     Dosage: 10 MG, 1X/DAY
     Route: 048
     Dates: start: 20171208
  3. VONOPRAZAN FUMARATE [Concomitant]
     Active Substance: VONOPRAZAN FUMARATE
     Indication: Prophylaxis
  4. REBAMIPIDE [Concomitant]
     Active Substance: REBAMIPIDE
     Indication: Prophylaxis against gastrointestinal ulcer
     Dosage: 100 MG, 3X/DAY
     Route: 048
     Dates: start: 20180601
  5. ELDECALCITOL [Concomitant]
     Active Substance: ELDECALCITOL
     Indication: Osteoporosis prophylaxis
     Dosage: 0.75 UG, 1X/DAY
     Route: 048
     Dates: start: 20161114, end: 20200206
  6. CLONAZEPAM [Concomitant]
     Active Substance: CLONAZEPAM
     Indication: Hypoaesthesia
     Dosage: 0.5 MG, 2X/DAY
     Route: 048
     Dates: start: 20170216, end: 20200130
  7. LYRICA [Concomitant]
     Active Substance: PREGABALIN
     Indication: Hypoaesthesia
     Dosage: 25 MG, 2X/DAY
     Route: 048
     Dates: start: 20190807
  8. ACETAMINOPHEN [Concomitant]
     Active Substance: ACETAMINOPHEN
     Indication: Laryngeal pain
     Dosage: 400 MG, 3X/DAY
     Route: 048
     Dates: start: 20191227, end: 20200130
  9. LOXOPROFEN SODIUM TAPE [Concomitant]
     Indication: Back pain
     Dosage: 100 MG, AS NEEDED
     Route: 062
  10. SILVER SULFADIAZINE [Concomitant]
     Active Substance: SILVER SULFADIAZINE
     Dosage: UNK
     Route: 061
     Dates: start: 20190807
  11. LOXOPROFEN SODIUM DIHYDRATE [Concomitant]
     Active Substance: LOXOPROFEN SODIUM DIHYDRATE
     Dosage: 60 MG, 3X/DAY
     Route: 048
     Dates: start: 20191129, end: 20191227
  12. ENSURE [Concomitant]
     Active Substance: AMINO ACIDS\DEXTROSE\ELECTROLYTES NOS\SOYBEAN OIL\VITAMINS
     Dosage: 250 ML, 1X/DAY
     Route: 048
     Dates: start: 20191129, end: 20200130
  13. LASIX [Concomitant]
     Active Substance: FUROSEMIDE
     Dosage: 10 MG, 1X/DAY
     Route: 048
     Dates: start: 20191212, end: 20200130

REACTIONS (3)
  - Hypophagia [Unknown]
  - Renal impairment [Recovered/Resolved]
  - Renal impairment [Recovered/Resolved with Sequelae]

NARRATIVE: CASE EVENT DATE: 20181130
